FAERS Safety Report 12519369 (Version 1)
Quarter: 2016Q3

REPORT INFORMATION
  Report Type: Spontaneous
  Country: CO (occurrence: CO)
  Receive Date: 20160701
  Receipt Date: 20160701
  Transmission Date: 20161109
  Serious: Yes (Other)
  Sender: FDA-Public Use
  Company Number: CO-BAXTER-2016BAX033834

PATIENT
  Sex: Male

DRUGS (2)
  1. METRONIDAZOL 500MG [Suspect]
     Active Substance: METRONIDAZOLE
     Route: 042
  2. METRONIDAZOL 500MG [Suspect]
     Active Substance: METRONIDAZOLE
     Indication: PRODUCT USED FOR UNKNOWN INDICATION
     Route: 040

REACTIONS (1)
  - Hypersensitivity [Unknown]
